FAERS Safety Report 23456681 (Version 2)
Quarter: 2024Q1

REPORT INFORMATION
  Report Type: Other
  Country: US (occurrence: None)
  Receive Date: 20240130
  Receipt Date: 20240201
  Transmission Date: 20240410
  Serious: Yes (Death)
  Sender: FDA-Public Use
  Company Number: US-ROCHE-3499860

PATIENT
  Age: 76 Year
  Sex: Male

DRUGS (23)
  1. POLIVY [Suspect]
     Active Substance: POLATUZUMAB VEDOTIN-PIIQ
     Indication: B-cell lymphoma
     Route: 042
  2. RUXIENCE [Suspect]
     Active Substance: RITUXIMAB-PVVR
     Indication: B-cell lymphoma
     Route: 042
  3. ACYCLOVIR [Concomitant]
     Active Substance: ACYCLOVIR
     Route: 048
  4. OLANZAPINE [Concomitant]
     Active Substance: OLANZAPINE
     Indication: Nausea
     Route: 048
  5. ONDANSETRON [Concomitant]
     Active Substance: ONDANSETRON
     Indication: Nausea
     Route: 048
  6. ONDANSETRON [Concomitant]
     Active Substance: ONDANSETRON
     Indication: Vomiting
  7. OXYCODONE [Concomitant]
     Active Substance: OXYCODONE\OXYCODONE HYDROCHLORIDE
     Route: 048
  8. PREDNISONE [Concomitant]
     Active Substance: PREDNISONE
     Route: 048
  9. PROMETHAZINE [Concomitant]
     Active Substance: PROMETHAZINE HYDROCHLORIDE
     Route: 048
  10. SULFAMETHOXAZOLE\TRIMETHOPRIM [Concomitant]
     Active Substance: SULFAMETHOXAZOLE\TRIMETHOPRIM
  11. XANAX [Concomitant]
     Active Substance: ALPRAZOLAM
     Route: 048
  12. CYCLOPHOSPHAMIDE [Concomitant]
     Active Substance: CYCLOPHOSPHAMIDE
     Route: 042
  13. DOXORUBICIN [Concomitant]
     Active Substance: DOXORUBICIN
     Route: 042
  14. NYVEPRIA [Concomitant]
     Active Substance: PEGFILGRASTIM-APGF
     Route: 058
  15. PALONOSETRON [Concomitant]
     Active Substance: PALONOSETRON
     Route: 042
  16. FOSAPREPITANT [Concomitant]
     Active Substance: FOSAPREPITANT
     Route: 042
  17. ACETAMINOPHEN [Concomitant]
     Active Substance: ACETAMINOPHEN
     Route: 048
  18. DIPHENHYDRAMINE [Concomitant]
     Active Substance: DIPHENHYDRAMINE
     Route: 042
  19. DIPHENHYDRAMINE [Concomitant]
     Active Substance: DIPHENHYDRAMINE
     Route: 042
  20. EPINEPHRINE [Concomitant]
     Active Substance: EPINEPHRINE
     Route: 030
  21. FAMOTIDINE [Concomitant]
     Active Substance: FAMOTIDINE
     Route: 042
  22. HYDROCORTISONE [Concomitant]
     Active Substance: HYDROCORTISONE
     Route: 042
  23. METHYLPREDNISOLONE [Concomitant]
     Active Substance: METHYLPREDNISOLONE
     Route: 042

REACTIONS (1)
  - Death [Fatal]
